FAERS Safety Report 8397701-X (Version None)
Quarter: 2012Q2

REPORT INFORMATION
  Report Type: 
  Country: None (occurrence: None)
  Receive Date: 20120323
  Receipt Date: 20120323
  Transmission Date: 20120825
  Serious: Yes (Hospitalization)
  Sender: FDA-Public Use
  Company Number: 163-21880-11011520

PATIENT
  Age: 64 Year
  Sex: Male

DRUGS (7)
  1. REVLIMID [Suspect]
     Indication: NON-HODGKIN'S LYMPHOMA
     Dosage: 25 MG, DAILY, PO 10 MG, X 21 DAYS, PO
     Route: 048
     Dates: start: 20101201
  2. REVLIMID [Suspect]
     Indication: NON-HODGKIN'S LYMPHOMA
     Dosage: 25 MG, DAILY, PO 10 MG, X 21 DAYS, PO
     Route: 048
     Dates: end: 20110122
  3. ACETAMINOPHEN [Concomitant]
  4. PREDNISONE TAB [Concomitant]
  5. STOOL SOFTENER (DOCUSATE SODIUM) [Concomitant]
  6. DRY EYE RELIEF (TETRYZOLINE HYDROCHLORIDE) [Concomitant]
  7. XALATAN [Concomitant]

REACTIONS (2)
  - BACTERIAL INFECTION [None]
  - WHITE BLOOD CELL COUNT DECREASED [None]
